FAERS Safety Report 8737842 (Version 2)
Quarter: 2013Q4

REPORT INFORMATION
  Report Type: Report from Study
  Country: US (occurrence: US)
  Receive Date: 20120822
  Receipt Date: 20131031
  Transmission Date: 20140711
  Serious: Yes (Hospitalization)
  Sender: FDA-Public Use
  Company Number: US-MERCK-2010SP063934

PATIENT
  Age: 44 Year
  Sex: Female
  Weight: 75.3 kg

DRUGS (13)
  1. BOCEPREVIR [Suspect]
     Indication: CHRONIC HEPATITIS C
     Dosage: 800 MG, Q8H
     Route: 048
     Dates: start: 20100316
  2. RIBAVIRIN [Suspect]
     Indication: CHRONIC HEPATITIS C
     Dosage: 600 MG, QAM
     Route: 048
     Dates: start: 20100216
  3. RIBAVIRIN [Suspect]
     Dosage: 600 MG, QAM
     Route: 048
     Dates: start: 20100216
  4. RIBAVIRIN [Suspect]
     Dosage: 800 MG, QD
     Dates: start: 20101108
  5. RIBAVIRIN [Suspect]
     Dosage: 1000 MG, QD
     Dates: start: 20101111
  6. RIBAVIRIN [Suspect]
     Dosage: 600 MG, QD
  7. PEGINTERFERON ALFA-2B [Suspect]
     Indication: CHRONIC HEPATITIS C
     Dosage: 96 MICROGRAM, QW
     Route: 058
     Dates: start: 20100216
  8. PEGINTERFERON ALFA-2B [Suspect]
     Dosage: 96 MICROGRAM, QW
     Route: 058
     Dates: start: 20100216
  9. REYATAZ [Concomitant]
     Indication: HIV INFECTION
     Dosage: 300MG/100MG, QD
     Route: 048
  10. LISINOPRIL [Concomitant]
     Indication: HYPERTENSION
     Dosage: 10 MG, QD
     Route: 048
  11. LEXAPRO [Concomitant]
     Indication: DEPRESSION
     Dosage: 10 MG, QD
     Route: 048
  12. EPOETIN ALFA [Concomitant]
     Indication: ANAEMIA
     Dosage: 40, QW
     Route: 058
     Dates: start: 20100331
  13. VIREAD [Concomitant]
     Indication: HIV INFECTION
     Dosage: 1 DF, QD
     Route: 048

REACTIONS (1)
  - Syncope [Recovering/Resolving]
